FAERS Safety Report 13381342 (Version 4)
Quarter: 2017Q4

REPORT INFORMATION
  Report Type: Report from Study
  Country: AT (occurrence: AT)
  Receive Date: 20170329
  Receipt Date: 20171018
  Transmission Date: 20180320
  Serious: Yes (Hospitalization)
  Sender: FDA-Public Use
  Company Number: AT-CELGENEUS-AUT-2016117368

PATIENT
  Age: 67 Year
  Sex: Female
  Weight: 51 kg

DRUGS (13)
  1. ABRAXANE [Suspect]
     Active Substance: PACLITAXEL
     Route: 041
     Dates: start: 20150801
  2. CIPRALEX [Concomitant]
     Active Substance: ESCITALOPRAM OXALATE
     Indication: DEPRESSION
     Dosage: 5 MG
     Route: 048
  3. G-CSF [Concomitant]
     Active Substance: GRANULOCYTE COLONY-STIMULATING FACTOR NOS
     Indication: PRODUCT USED FOR UNKNOWN INDICATION
     Route: 065
  4. CONCOR COR [Concomitant]
     Active Substance: BISOPROLOL FUMARATE
     Indication: HYPERTENSION
     Dosage: 2.5 MG
     Route: 048
  5. ELOMEL [Concomitant]
     Indication: NUTRITIONAL SUPPLEMENTATION
     Dosage: 500 ML
     Route: 050
  6. CERNEVIT [Concomitant]
     Active Substance: VITAMINS
     Indication: NUTRITIONAL SUPPLEMENTATION
     Dosage: 500 ML
     Route: 050
  7. 5-HT3 [Concomitant]
     Indication: PRODUCT USED FOR UNKNOWN INDICATION
     Route: 065
  8. GEMZAR [Suspect]
     Active Substance: GEMCITABINE HYDROCHLORIDE
     Indication: PANCREATIC CARCINOMA
     Route: 041
     Dates: start: 20161109, end: 20170504
  9. GEMZAR [Suspect]
     Active Substance: GEMCITABINE HYDROCHLORIDE
     Route: 041
     Dates: start: 20150801
  10. PRAXITEN [Concomitant]
     Active Substance: OXAZEPAM
     Indication: DEPRESSION
     Dosage: 30 MG
     Route: 048
  11. PANTOLOC [Concomitant]
     Active Substance: PANTOPRAZOLE SODIUM
     Indication: PROPHYLAXIS
     Dosage: 80 MG
     Route: 048
  12. DRONABINOL. [Concomitant]
     Active Substance: DRONABINOL
     Indication: PAIN
     Route: 065
  13. ABRAXANE [Suspect]
     Active Substance: PACLITAXEL
     Indication: PANCREATIC CARCINOMA
     Route: 041
     Dates: start: 20161109, end: 20170504

REACTIONS (26)
  - Anaemia [Recovered/Resolved]
  - Aspartate aminotransferase increased [Recovered/Resolved]
  - Blood alkaline phosphatase increased [Recovered/Resolved]
  - Platelet count decreased [Recovered/Resolved]
  - Nausea [Not Recovered/Not Resolved]
  - Haematocrit decreased [Recovered/Resolved]
  - Alanine aminotransferase increased [Recovered/Resolved]
  - Dyspnoea [Recovered/Resolved]
  - Neutrophil count decreased [Recovered/Resolved]
  - Haematocrit decreased [Recovered/Resolved]
  - Gamma-glutamyltransferase increased [Recovered/Resolved]
  - Platelet count decreased [Recovered/Resolved]
  - Peripheral sensory neuropathy [Not Recovered/Not Resolved]
  - Nausea [Recovered/Resolved]
  - White blood cell count decreased [Recovered/Resolved]
  - White blood cell count decreased [Recovered/Resolved]
  - Neutrophil count decreased [Recovered/Resolved]
  - Gastroenteritis [Recovered/Resolved]
  - Nausea [Recovered/Resolved]
  - Platelet count decreased [Recovered/Resolved]
  - Platelet count decreased [Recovered/Resolved]
  - Malaise [Not Recovered/Not Resolved]
  - Platelet count increased [Recovered/Resolved]
  - Platelet count increased [Recovered/Resolved]
  - Alopecia [Recovered/Resolved]
  - Renal function test abnormal [Recovered/Resolved]

NARRATIVE: CASE EVENT DATE: 20161110
